FAERS Safety Report 5658430-6 (Version None)
Quarter: 2008Q1

REPORT INFORMATION
  Report Type: 
  Country: None (occurrence: None)
  Receive Date: 20080310
  Receipt Date: 20070402
  Transmission Date: 20080703
  Serious: Yes (Hospitalization)
  Sender: FDA-Public Use
  Company Number: US-BAYER-200710579BCC

PATIENT
  Age: 66 Year
  Sex: Male
  Weight: 91 kg

DRUGS (10)
  1. ALEVE [Suspect]
     Indication: BACK PAIN
     Dosage: UNIT DOSE: 220 MG
     Route: 048
     Dates: start: 20060401, end: 20060701
  2. ASPIRIN [Suspect]
     Indication: DRUG USE FOR UNKNOWN INDICATION
     Dosage: TOTAL DAILY DOSE: 81 MG  UNIT DOSE: 81 MG
     Route: 048
  3. AVAPRO [Concomitant]
     Dosage: TOTAL DAILY DOSE: 300 MG  UNIT DOSE: 300 MG
  4. NORVASC [Concomitant]
     Dosage: TOTAL DAILY DOSE: 10 MG  UNIT DOSE: 10 MG
  5. LIPITOR [Concomitant]
     Dosage: AS USED: 40 MG  UNIT DOSE: 40 MG
  6. GLUCOSAMINE [Concomitant]
  7. MULTI-VITAMIN [Concomitant]
  8. ASCORBIC ACID [Concomitant]
  9. SAW PALMETTO [Concomitant]
  10. AMBIEN [Concomitant]

REACTIONS (16)
  - ANAEMIA [None]
  - ANOREXIA [None]
  - ASTHENIA [None]
  - DIZZINESS [None]
  - DUODENAL ULCER HAEMORRHAGE [None]
  - DYSPNOEA EXERTIONAL [None]
  - FAECES DISCOLOURED [None]
  - FATIGUE [None]
  - HAEMATOCHEZIA [None]
  - HYPOTENSION [None]
  - HYPOVOLAEMIA [None]
  - MELAENA [None]
  - METABOLIC ACIDOSIS [None]
  - NAUSEA [None]
  - PALLOR [None]
  - PALPITATIONS [None]
